FAERS Safety Report 13447419 (Version 1)
Quarter: 2017Q2

REPORT INFORMATION
  Report Type: Spontaneous
  Country: US (occurrence: US)
  Receive Date: 20170416
  Receipt Date: 20170416
  Transmission Date: 20170830
  Serious: Yes (Other)
  Sender: FDA-Public Use
  Company Number: None

PATIENT
  Age: 38 Year
  Sex: Female
  Weight: 99.88 kg

DRUGS (4)
  1. TYLENOL [Concomitant]
     Active Substance: ACETAMINOPHEN
  2. IBUPROFEN. [Concomitant]
     Active Substance: IBUPROFEN
  3. NEXPLANON [Suspect]
     Active Substance: ETONOGESTREL
  4. COREG XR [Concomitant]

REACTIONS (3)
  - Headache [None]
  - Vertigo [None]
  - Implant site pain [None]

NARRATIVE: CASE EVENT DATE: 20170410
